FAERS Safety Report 14790037 (Version 1)
Quarter: 2018Q2

REPORT INFORMATION
  Report Type: Report from Study
  Country: MX (occurrence: MX)
  Receive Date: 20180423
  Receipt Date: 20180423
  Transmission Date: 20180711
  Serious: Yes (Other)
  Sender: FDA-Public Use
  Company Number: PHHY2018MX056879

PATIENT
  Sex: Female
  Weight: 65 kg

DRUGS (2)
  1. MELOXICAM. [Concomitant]
     Active Substance: MELOXICAM
     Indication: SPINAL DISORDER
     Dosage: 2 DF (IN CASE OF PAIN) START 4 YEARS AGO
     Route: 048
  2. CO-DIOVAN [Suspect]
     Active Substance: HYDROCHLOROTHIAZIDE\VALSARTAN
     Indication: HYPERTENSION
     Dosage: 1 DF (HYDROCHLOROTHIAZIDE 12.5 MG, VALSARTAN 160 MG), QD
     Route: 048

REACTIONS (4)
  - Blood pressure decreased [Recovered/Resolved]
  - Pyrexia [Recovering/Resolving]
  - Dizziness [Recovered/Resolved]
  - Uterine haemorrhage [Recovered/Resolved]
